FAERS Safety Report 12440455 (Version 2)
Quarter: 2016Q3

REPORT INFORMATION
  Report Type: Spontaneous
  Country: GB (occurrence: GB)
  Receive Date: 20160606
  Receipt Date: 20160721
  Transmission Date: 20161109
  Serious: Yes (Other)
  Sender: FDA-Public Use
  Company Number: GB-TEVA-664358ACC

PATIENT
  Age: 82 Year
  Sex: Male
  Weight: 80 kg

DRUGS (15)
  1. CLARITHROMYCIN. [Concomitant]
     Active Substance: CLARITHROMYCIN
     Dosage: 2 DOSAGE FORMS DAILY;
     Dates: start: 20160401, end: 20160408
  2. LACRI-LUBE [Concomitant]
     Dosage: TO USE AS DIRECTED
     Dates: start: 20160104
  3. METHOTREXATE. [Concomitant]
     Active Substance: METHOTREXATE
     Dosage: 5 MG (TWO TABLETS)
     Dates: start: 20160208
  4. SOLIFENACIN [Suspect]
     Active Substance: SOLIFENACIN
     Dates: start: 20160120, end: 20160425
  5. BISOPROLOL [Concomitant]
     Active Substance: BISOPROLOL
     Dosage: 2 DOSAGE FORMS DAILY; AS ADV BY YOUR CONSUL...
     Dates: start: 20150929
  6. FOLIC ACID. [Concomitant]
     Active Substance: FOLIC ACID
     Dosage: AS ADVISED BY YOUR CONSULTANT
     Dates: start: 20150615, end: 20160418
  7. TAMSULOSIN HYDROCHLORIDE. [Suspect]
     Active Substance: TAMSULOSIN HYDROCHLORIDE
     Dosage: 1 DOSAGE FORMS DAILY;
     Dates: start: 20160120, end: 20160425
  8. FULTIUM-D3 [Concomitant]
     Dosage: 1 DOSAGE FORMS DAILY;
     Dates: start: 20151109
  9. FYBOGEL [Concomitant]
     Active Substance: PLANTAGO OVATA SEED
     Dosage: 1 DOSAGE FORMS DAILY;
     Dates: start: 20160208
  10. LANSOPRAZOLE. [Concomitant]
     Active Substance: LANSOPRAZOLE
     Dosage: 2 DOSAGE FORMS DAILY; EACH MORNING
     Dates: start: 20160208
  11. LAXIDO [Concomitant]
     Active Substance: POLYETHYLENE GLYCOL 3350\POTASSIUM CHLORIDE\SODIUM BICARBONATE\SODIUM CHLORIDE
     Dosage: 1-3 EVERY DAY
     Dates: start: 20160208
  12. ASPIRIN. [Concomitant]
     Active Substance: ASPIRIN
     Dosage: 1 DOSAGE FORMS DAILY;
     Dates: start: 20150929
  13. ATORVASTATIN [Concomitant]
     Active Substance: ATORVASTATIN
     Dosage: 1 DOSAGE FORMS DAILY;
     Dates: start: 20150914
  14. QUININE [Concomitant]
     Active Substance: QUININE
     Dosage: 1 DOSAGE FORMS DAILY;
     Dates: start: 20151215
  15. SILDENAFIL. [Concomitant]
     Active Substance: SILDENAFIL
     Dosage: TAKE ONE 30 MINS BEFORE IT IS REQUIRED
     Dates: start: 20160104

REACTIONS (1)
  - Hyperkalaemia [Recovered/Resolved]

NARRATIVE: CASE EVENT DATE: 20160203
